FAERS Safety Report 5097765-5 (Version None)
Quarter: 2006Q3

REPORT INFORMATION
  Report Type: 
  Country: None (occurrence: None)
  Receive Date: 20060901
  Receipt Date: 20060818
  Transmission Date: 20061208
  Serious: Yes (Hospitalization)
  Sender: FDA-Public Use
  Company Number: 229063

PATIENT
  Age: 61 Year
  Sex: Male

DRUGS (4)
  1. BEVACIZUMAB (BEVACIZUMAB) PWDR  + SOLVENT, INFUSION SOLN, 100MG [Suspect]
     Indication: COLORECTAL CANCER METASTATIC
     Dosage: 350 MG,  Q2W, INTRAVENOUS
     Route: 042
     Dates: start: 20041221, end: 20050428
  2. OXALIPLATIN [Suspect]
     Indication: COLORECTAL CANCER METASTATIC
     Dosage: 108 MG, Q2W, INTRAVENOUS
     Route: 042
     Dates: start: 20041221, end: 20050428
  3. LEUCOVORIN CALCIUM [Suspect]
     Indication: COLORECTAL CANCER METASTATIC
     Dosage: 362 MG, Q2W, INTRAVENOUS
     Route: 042
     Dates: start: 20041221, end: 20050428
  4. FLUOROURACIL [Suspect]
     Indication: COLORECTAL CANCER METASTATIC
     Dosage: 1440 MG, Q2W, INTRAVENOUS
     Route: 042
     Dates: start: 20041221, end: 20050428

REACTIONS (1)
  - PYONEPHROSIS [None]
